FAERS Safety Report 6138016-X (Version None)
Quarter: 2009Q1

REPORT INFORMATION
  Report Type: 
  Country: None (occurrence: None)
  Receive Date: 20090327
  Receipt Date: 20090327
  Transmission Date: 20090719
  Serious: Yes (Other)
  Sender: FDA-Public Use
  Company Number: None

PATIENT
  Age: 85 Year
  Sex: Female
  Weight: 72.5755 kg

DRUGS (6)
  1. HYDROCHLOROTHIAZIDE [Suspect]
     Indication: FLUID RETENTION
     Dosage: 1 CAPSULE 1 PER DAY 3 DAYS BEFORE EVENT RETURNED TO ORIGINAL MANUFACTURER
  2. HYDROCHLOROTHIAZIDE [Suspect]
     Indication: HYPERTENSION
     Dosage: 1 CAPSULE 1 PER DAY 3 DAYS BEFORE EVENT RETURNED TO ORIGINAL MANUFACTURER
  3. LEVOTHYROXINE SODIUM [Concomitant]
  4. CALCITRIOL [Concomitant]
  5. ASPIRIN [Concomitant]
  6. FLAXSEED OIL [Concomitant]

REACTIONS (4)
  - MUSCLE SPASMS [None]
  - POLYURIA [None]
  - THIRST [None]
  - URINE OUTPUT INCREASED [None]
